FAERS Safety Report 4933636-X (Version None)
Quarter: 2006Q1

REPORT INFORMATION
  Report Type: 
  Country: None (occurrence: None)
  Receive Date: 20060306
  Receipt Date: 20060118
  Transmission Date: 20060701
  Serious: Yes (Hospitalization)
  Sender: FDA-Public Use
  Company Number: FR-ROCHE-432612

PATIENT
  Age: 64 Year
  Sex: Female

DRUGS (9)
  1. PEGASYS [Suspect]
     Indication: HEPATITIS C
     Route: 058
     Dates: start: 20051026, end: 20051226
  2. COPEGUS [Suspect]
     Indication: HEPATITIS C
     Route: 065
     Dates: start: 20051026, end: 20060124
  3. ARANESP [Concomitant]
     Dosage: INTRODUCED BEFORE THE START OF RIBAVIRIN AND PEG-INTERFERON ALFA 2A.
  4. STABLON [Concomitant]
  5. DOLIPRANE [Concomitant]
  6. TEMESTA [Concomitant]
  7. LAMALINE [Concomitant]
  8. OGAST [Concomitant]
  9. DIFFU K [Concomitant]

REACTIONS (1)
  - CEREBELLAR SYNDROME [None]
